FAERS Safety Report 22604491 (Version 1)
Quarter: 2023Q2

REPORT INFORMATION
  Report Type: Spontaneous
  Country: US (occurrence: US)
  Receive Date: 20230615
  Receipt Date: 20230615
  Transmission Date: 20230722
  Serious: Yes (Life-Threatening, Other)
  Sender: FDA-Public Use
  Company Number: US-PFIZER INC-PV202300100482

PATIENT
  Age: 53 Year
  Sex: Female

DRUGS (2)
  1. HYDROMORPHONE HYDROCHLORIDE [Suspect]
     Active Substance: HYDROMORPHONE HYDROCHLORIDE
     Indication: Pancreatic carcinoma
     Dosage: 200MCG/ML THROUGH HER PUMP
     Route: 037
  2. BUPIVACAINE [Suspect]
     Active Substance: BUPIVACAINE
     Indication: Pancreatic carcinoma
     Dosage: 30 MG/ML, THROUGH HER PUMP
     Route: 037

REACTIONS (1)
  - Withdrawal syndrome [Unknown]
